FAERS Safety Report 6151674-9 (Version None)
Quarter: 2009Q2

REPORT INFORMATION
  Report Type: 
  Country: None (occurrence: None)
  Receive Date: 20090410
  Receipt Date: 20090410
  Transmission Date: 20091009
  Serious: Yes (Life-Threatening)
  Sender: FDA-Public Use
  Company Number: A0777930A

PATIENT
  Age: 49 Year
  Sex: Female

DRUGS (3)
  1. ALLI [Suspect]
     Indication: WEIGHT CONTROL
     Route: 048
     Dates: start: 20090405, end: 20090409
  2. TYLENOL W/ CODEINE NO. 3 [Concomitant]
     Indication: MIGRAINE
     Route: 048
  3. VITAMIN TAB [Concomitant]

REACTIONS (3)
  - PAIN [None]
  - RECTAL HAEMORRHAGE [None]
  - RECTAL ULCER [None]
